FAERS Safety Report 21820341 (Version 1)
Quarter: 2023Q1

REPORT INFORMATION
  Report Type: Spontaneous
  Country: FR (occurrence: FR)
  Receive Date: 20230105
  Receipt Date: 20230105
  Transmission Date: 20230418
  Serious: Yes (Other)
  Sender: FDA-Public Use
  Company Number: FR-CSPFRANCE-2022001173

PATIENT
  Age: 54 Year
  Sex: Female

DRUGS (5)
  1. VORICONAZOLE [Suspect]
     Active Substance: VORICONAZOLE
     Indication: Fusarium infection
     Dosage: UNK
     Route: 048
  2. NATAMYCIN [Suspect]
     Active Substance: NATAMYCIN
     Indication: Fusarium infection
     Dosage: UNK
     Route: 047
  3. NATAMYCIN [Suspect]
     Active Substance: NATAMYCIN
     Dosage: UNK
     Route: 047
  4. TOBRAMYCIN SULFATE [Suspect]
     Active Substance: TOBRAMYCIN SULFATE
     Indication: Fusarium infection
     Dosage: UNK
     Route: 047
  5. TOBRAMYCIN SULFATE [Suspect]
     Active Substance: TOBRAMYCIN SULFATE
     Dosage: UNK
     Route: 047

REACTIONS (2)
  - Corneal perforation [Recovering/Resolving]
  - Off label use [Unknown]
